FAERS Safety Report 9390557 (Version 1)
Quarter: 2013Q3

REPORT INFORMATION
  Report Type: Spontaneous
  Country: US (occurrence: US)
  Receive Date: 20130709
  Receipt Date: 20130709
  Transmission Date: 20140515
  Serious: Yes (Death)
  Sender: FDA-Public Use
  Company Number: US-JNJFOC-20130617787

PATIENT
  Age: 55 Year
  Sex: Male

DRUGS (16)
  1. XARELTO [Suspect]
     Indication: CEREBROVASCULAR ACCIDENT PROPHYLAXIS
     Route: 048
     Dates: start: 201207, end: 201306
  2. XARELTO [Suspect]
     Indication: ATRIAL FIBRILLATION
     Route: 048
     Dates: start: 201207, end: 201306
  3. ATENOLOL [Concomitant]
     Route: 048
     Dates: end: 201306
  4. FLEXERIL [Concomitant]
     Route: 048
     Dates: end: 201306
  5. SIMVASTATIN [Concomitant]
     Route: 048
     Dates: end: 201306
  6. CELEBREX [Concomitant]
     Route: 048
     Dates: end: 201306
  7. CENTRUM SILVER [Concomitant]
     Route: 065
     Dates: end: 201306
  8. CIALIS [Concomitant]
     Route: 048
     Dates: end: 201306
  9. GABAPENTIN [Concomitant]
     Route: 048
     Dates: end: 201306
  10. OXYCODONE HCL [Concomitant]
     Dosage: 1-2 TABLETS 2 TIMES A DAY AS NEEDED
     Route: 048
     Dates: end: 201306
  11. GLUCOSAMINE / CHONDROITIN [Concomitant]
     Route: 048
     Dates: end: 201306
  12. LISINOPRIL [Concomitant]
     Route: 048
     Dates: end: 201306
  13. MELATONIN [Concomitant]
     Route: 048
     Dates: end: 201306
  14. VOLTAREN [Concomitant]
     Dosage: APPLIED 4 TIMES A DAY AS NEEDED AROUND ANKLE
     Route: 061
     Dates: end: 201306
  15. ZOLPIDEM [Concomitant]
     Route: 048
     Dates: end: 201306
  16. CARVEDILOL [Concomitant]
     Indication: ATRIAL FIBRILLATION
     Route: 065

REACTIONS (1)
  - Mesenteric artery thrombosis [Fatal]
